FAERS Safety Report 15080761 (Version 1)
Quarter: 2018Q2

REPORT INFORMATION
  Report Type: Spontaneous
  Country: IT (occurrence: IT)
  Receive Date: 20180628
  Receipt Date: 20180628
  Transmission Date: 20180711
  Serious: Yes (Other)
  Sender: FDA-Public Use
  Company Number: IT-TEVA-2018-IT-917133

PATIENT
  Age: 70 Year
  Sex: Female
  Weight: 85 kg

DRUGS (5)
  1. CALCIO LEVOFOLINATO TEVA 100 MG POLVERE PER SOLUZIONE PER INFUSIONE [Concomitant]
     Indication: ADENOCARCINOMA OF COLON
     Route: 042
     Dates: start: 20171027
  2. OXALIPLATIN INJECTION 50MG/10 ML+100MG/20ML [Suspect]
     Active Substance: OXALIPLATIN
     Indication: ADENOCARCINOMA OF COLON
     Route: 042
     Dates: start: 20171027
  3. FLUOROURACILE AHCL 50 MG/ML, SOLUZIONE PER INIEZIONE O INFUSIONE [Concomitant]
     Indication: ADENOCARCINOMA OF COLON
     Route: 040
     Dates: start: 20171027
  4. FLUOROURACILE AHCL 50 MG/ML, SOLUZIONE PER INIEZIONE O INFUSIONE [Concomitant]
     Indication: ADENOCARCINOMA OF COLON
     Route: 042
  5. AVASTIN [Concomitant]
     Active Substance: BEVACIZUMAB
     Indication: ADENOCARCINOMA OF COLON
     Route: 042
     Dates: start: 20171027

REACTIONS (2)
  - Asthenia [Recovering/Resolving]
  - Paraesthesia [Recovering/Resolving]

NARRATIVE: CASE EVENT DATE: 20180221
